FAERS Safety Report 11681665 (Version 1)
Quarter: 2015Q4

REPORT INFORMATION
  Report Type: Spontaneous
  Country: US (occurrence: None)
  Receive Date: 20151028
  Receipt Date: 20151028
  Transmission Date: 20160304
  Serious: Yes (Life-Threatening, Hospitalization)
  Sender: FDA-Public Use
  Company Number: None

PATIENT
  Age: 46 Year
  Sex: Female

DRUGS (1)
  1. TECFIDERA [Suspect]
     Active Substance: DIMETHYL FUMARATE
     Indication: BACK PAIN
     Route: 048
     Dates: start: 20150129

REACTIONS (2)
  - White blood cell count decreased [None]
  - Antinuclear antibody positive [None]

NARRATIVE: CASE EVENT DATE: 20150922
